FAERS Safety Report 9360419 (Version 1)
Quarter: 2013Q2

REPORT INFORMATION
  Report Type: Spontaneous
  Country: US (occurrence: US)
  Receive Date: 20130621
  Receipt Date: 20130621
  Transmission Date: 20140414
  Serious: Yes (Other)
  Sender: FDA-Public Use
  Company Number: US-BAYER-2013-076366

PATIENT
  Age: 15 Year
  Sex: Female
  Weight: 56.69 kg

DRUGS (2)
  1. YAZ [Suspect]
  2. OCELLA [Suspect]

REACTIONS (1)
  - Pulmonary embolism [Recovered/Resolved]
